FAERS Safety Report 16761122 (Version 1)
Quarter: 2019Q3

REPORT INFORMATION
  Report Type: Spontaneous
  Country: US (occurrence: US)
  Receive Date: 20190830
  Receipt Date: 20190830
  Transmission Date: 20191005
  Serious: No
  Sender: FDA-Public Use
  Company Number: US-ANIPHARMA-2018-US-021591

PATIENT
  Age: 35 Year
  Sex: Female
  Weight: 90.72 kg

DRUGS (1)
  1. ANASTROZOLE. [Suspect]
     Active Substance: ANASTROZOLE
     Indication: BREAST CANCER
     Dosage: UNKNOWN
     Route: 048

REACTIONS (1)
  - Bone pain [Unknown]
